FAERS Safety Report 23828183 (Version 3)
Quarter: 2024Q4

REPORT INFORMATION
  Report Type: Spontaneous
  Country: MX (occurrence: MX)
  Receive Date: 20240508
  Receipt Date: 20241022
  Transmission Date: 20250114
  Serious: Yes (Disabling, Other)
  Sender: ROCHE
  Company Number: MX-ROCHE-3530328

PATIENT
  Age: 90 Year
  Sex: Female
  Weight: 70.0 kg

DRUGS (4)
  1. VABYSMO [Suspect]
     Active Substance: FARICIMAB-SVOA
     Indication: Neovascular age-related macular degeneration
     Dosage: LEFT INJECTION :12/JUN/2023 AND RIGHT EYE: 10/JAN/2024?DATE OF LAST FARICIMAB INJECTION: 10/JAN/2024
     Route: 050
     Dates: start: 202403
  2. VABYSMO [Suspect]
     Active Substance: FARICIMAB-SVOA
     Indication: Choroidal neovascularisation
  3. RANIBIZUMAB [Concomitant]
     Active Substance: RANIBIZUMAB
  4. AFLIBERCEPT [Concomitant]
     Active Substance: AFLIBERCEPT

REACTIONS (5)
  - Retinal vascular occlusion [Recovered/Resolved with Sequelae]
  - Diabetic retinopathy [Unknown]
  - Eye inflammation [Recovered/Resolved with Sequelae]
  - Vitreous floaters [Recovered/Resolved]
  - Visual acuity reduced [Unknown]

NARRATIVE: CASE EVENT DATE: 20240301
